FAERS Safety Report 7476084-3 (Version None)
Quarter: 2011Q2

REPORT INFORMATION
  Report Type: 
  Country: None (occurrence: None)
  Receive Date: 20110512
  Receipt Date: 20110503
  Transmission Date: 20111010
  Serious: Yes (Hospitalization, Other)
  Sender: FDA-Public Use
  Company Number: US-ASTRAZENECA-2010SE12193

PATIENT
  Age: 640 Month
  Sex: Male

DRUGS (5)
  1. PULMICORT [Concomitant]
     Route: 055
  2. ALBUTEROL [Concomitant]
  3. BROVANA [Concomitant]
     Dosage: TWICE A DAY
  4. SEROQUEL [Suspect]
     Route: 048
  5. IPRATROPIUM BROMIDE [Concomitant]
     Dosage: PER NEBULIZER, FOUR TIMES A DAY

REACTIONS (13)
  - SLEEP APNOEA SYNDROME [None]
  - BRAIN INJURY [None]
  - CEREBROVASCULAR ACCIDENT [None]
  - UPPER RESPIRATORY TRACT INFECTION [None]
  - PNEUMONIA BACTERIAL [None]
  - HALLUCINATION [None]
  - OXYGEN SUPPLEMENTATION [None]
  - FLANK PAIN [None]
  - INCORRECT DOSE ADMINISTERED [None]
  - CHRONIC OBSTRUCTIVE PULMONARY DISEASE [None]
  - SOMNOLENCE [None]
  - PNEUMONIA [None]
  - DRUG DOSE OMISSION [None]
